FAERS Safety Report 25067437 (Version 2)
Quarter: 2025Q3

REPORT INFORMATION
  Report Type: Report from Study
  Country: US (occurrence: US)
  Receive Date: 20250312
  Receipt Date: 20250829
  Transmission Date: 20251020
  Serious: Yes (Other)
  Sender: SUNOVION
  Company Number: US-SUMITOMO PHARMA SWITZERLAND GMBH-2025SPA001861

PATIENT
  Age: 77 Year
  Sex: Male

DRUGS (5)
  1. ORGOVYX [Suspect]
     Active Substance: RELUGOLIX
     Indication: Prostate cancer
     Route: 048
  2. ORGOVYX [Suspect]
     Active Substance: RELUGOLIX
     Dosage: 120 MG, QD
     Route: 048
  3. LUPRON [Suspect]
     Active Substance: LEUPROLIDE ACETATE
  4. NUBAIN [Suspect]
     Active Substance: NALBUPHINE HYDROCHLORIDE
     Indication: Product used for unknown indication
  5. NUBEQA [Concomitant]
     Active Substance: DAROLUTAMIDE

REACTIONS (5)
  - Surgery [Unknown]
  - Drug hypersensitivity [Unknown]
  - Erectile dysfunction [Unknown]
  - Loss of libido [Unknown]
  - Incorrect dose administered [Unknown]
